FAERS Safety Report 16036257 (Version 1)
Quarter: 2019Q1

REPORT INFORMATION
  Report Type: Spontaneous
  Country: SE (occurrence: SE)
  Receive Date: 20190305
  Receipt Date: 20190305
  Transmission Date: 20190418
  Serious: Yes (Hospitalization)
  Sender: FDA-Public Use
  Company Number: SE-PFIZER INC-2019091251

PATIENT
  Sex: Male

DRUGS (3)
  1. IMOVANE [Suspect]
     Active Substance: ZOPICLONE
     Dosage: 1 TABLET
     Dates: start: 20171223, end: 20171223
  2. COCILLANA-ETYFIN [ETHYLMORPHINE HYDROCHLORIDE;GUAREA GUIDONIA;POLYGALA [Suspect]
     Active Substance: ETHYLMORPHINE HYDROCHLORIDE
     Dosage: UNK
     Route: 048
     Dates: start: 20171223, end: 20171223
  3. LYRICA [Suspect]
     Active Substance: PREGABALIN
     Dosage: UNK
     Dates: start: 20171223, end: 20171223

REACTIONS (3)
  - Intentional overdose [Unknown]
  - Intentional self-injury [Unknown]
  - Lethargy [Unknown]

NARRATIVE: CASE EVENT DATE: 20171223
